FAERS Safety Report 9160205 (Version 1)
Quarter: 2013Q1

REPORT INFORMATION
  Report Type: Spontaneous
  Country: US (occurrence: US)
  Receive Date: 20130313
  Receipt Date: 20130313
  Transmission Date: 20140127
  Serious: Yes (Life-Threatening, Hospitalization)
  Sender: FDA-Public Use
  Company Number: US-ROCHE-1197494

PATIENT
  Sex: Female

DRUGS (1)
  1. XELODA [Suspect]
     Indication: HEPATIC CANCER
     Dosage: 6 TAB IN THE MORNING AND 6 TABLETS AT NIGHT.
     Route: 048

REACTIONS (8)
  - Overdose [Unknown]
  - Nausea [Unknown]
  - Vomiting [Unknown]
  - Diarrhoea [Unknown]
  - Dehydration [Unknown]
  - Hypokinesia [Unknown]
  - Coma [Unknown]
  - Pyrexia [Unknown]
